FAERS Safety Report 16871281 (Version 1)
Quarter: 2019Q4

REPORT INFORMATION
  Report Type: Spontaneous
  Country: US (occurrence: US)
  Receive Date: 20191001
  Receipt Date: 20191001
  Transmission Date: 20200122
  Serious: No
  Sender: FDA-Public Use
  Company Number: US-LUPIN PHARMACEUTICALS INC.-2019-04838

PATIENT
  Sex: Male

DRUGS (1)
  1. DESOXIMETASONE CREAM USP, 0.25% [Suspect]
     Active Substance: DESOXIMETASONE
     Indication: RASH
     Dosage: UNK
     Route: 061

REACTIONS (3)
  - Product physical consistency issue [Unknown]
  - Pruritus [Recovered/Resolved]
  - Drug ineffective [Unknown]
